FAERS Safety Report 7478677-6 (Version None)
Quarter: 2011Q2

REPORT INFORMATION
  Report Type: 
  Country: None (occurrence: None)
  Receive Date: 20110513
  Receipt Date: 20110506
  Transmission Date: 20111010
  Serious: Yes (Hospitalization, Other)
  Sender: FDA-Public Use
  Company Number: US-B.I. PHARMACEUTICALS,INC./RIDGEFIELD-2010-BP-12815BP

PATIENT
  Sex: Female
  Weight: 79.37 kg

DRUGS (19)
  1. RESTASIS [Concomitant]
     Route: 048
  2. LASIX [Concomitant]
     Dosage: 40 MG
  3. OMEPRAZOLE [Concomitant]
     Dosage: 20 MG
     Route: 048
  4. CARAFATE [Concomitant]
     Dosage: 4 G
  5. VITAMIN D [Concomitant]
  6. BUMEX [Concomitant]
     Dosage: 2 MG
  7. SUCRALFATE [Concomitant]
     Dosage: 3 G
     Route: 048
  8. POTASSIUM [Concomitant]
     Dosage: 10 MEQ
     Route: 048
  9. PRADAXA [Suspect]
     Dosage: 300 MG
     Dates: end: 20110101
  10. COREG [Concomitant]
     Dosage: 50 MG
     Route: 048
  11. NITROGLYCERIN [Concomitant]
  12. PRADAXA [Suspect]
     Dosage: 150 MG
     Dates: start: 20110101, end: 20110304
  13. PLAVIX [Concomitant]
     Dosage: 75 MG
  14. AMBIEN [Concomitant]
  15. ASPIRIN [Concomitant]
     Dosage: 81 MG
     Route: 048
  16. LISINOPRIL [Concomitant]
     Dosage: 20 MG
     Route: 048
  17. PRESERVISION AREDS [Concomitant]
     Route: 048
  18. VITAMIN D [Concomitant]
  19. COREG [Concomitant]
     Dosage: 25 MG
     Route: 048

REACTIONS (20)
  - CARDIAC FAILURE CONGESTIVE [None]
  - GASTROOESOPHAGEAL REFLUX DISEASE [None]
  - CORONARY ARTERY DISEASE [None]
  - ATRIAL FIBRILLATION [None]
  - ANAEMIA [None]
  - HEPATIC STEATOSIS [None]
  - HIATUS HERNIA [None]
  - TRANSAMINASES INCREASED [None]
  - GASTROINTESTINAL HAEMORRHAGE [None]
  - ARTERIOVENOUS MALFORMATION [None]
  - POLYP [None]
  - GASTRITIS [None]
  - HAEMATOCHEZIA [None]
  - CARDIO-RESPIRATORY ARREST [None]
  - SICK SINUS SYNDROME [None]
  - TROPONIN INCREASED [None]
  - DIVERTICULUM [None]
  - RENAL FAILURE ACUTE [None]
  - LIVER DISORDER [None]
  - HYPERTENSION [None]
